FAERS Safety Report 24727441 (Version 1)
Quarter: 2024Q4

REPORT INFORMATION
  Report Type: Spontaneous
  Country: US (occurrence: None)
  Receive Date: 20241212
  Receipt Date: 20241212
  Transmission Date: 20250115
  Serious: No
  Sender: Public
  Company Number: None

PATIENT
  Sex: Female

DRUGS (3)
  1. KESIMPTA [Suspect]
     Active Substance: OFATUMUMAB
     Indication: Multiple sclerosis
     Dosage: FREQUENCY : MONTHLY;?
     Route: 042
     Dates: start: 202409
  2. KESIMPTA [Concomitant]
     Active Substance: OFATUMUMAB
  3. BETASERON SDV (14 PER BOX) [Concomitant]

REACTIONS (1)
  - Pruritus [None]
